FAERS Safety Report 10086916 (Version 2)
Quarter: 2014Q2

REPORT INFORMATION
  Report Type: Spontaneous
  Country: US (occurrence: US)
  Receive Date: 20140418
  Receipt Date: 20140418
  Transmission Date: 20141212
  Serious: Yes (Other)
  Sender: FDA-Public Use
  Company Number: US-PFIZER INC-2014089971

PATIENT
  Age: 42 Year
  Sex: Female

DRUGS (9)
  1. ENBREL [Suspect]
     Indication: RHEUMATOID ARTHRITIS
     Dosage: 50 MG, QWK
     Route: 058
  2. ENBREL [Suspect]
     Dosage: 100 MG,  (^DOUBLING UP^ THE DOSE), QWK
     Route: 058
  3. ENBREL [Suspect]
     Dosage: 150 MG, QWK (50 MG SC WEEKLY ADDED)
     Route: 058
  4. XELJANZ [Suspect]
     Dosage: 5 MG, 2X/DAY
  5. ADALIMUMAB [Suspect]
     Indication: RHEUMATOID ARTHRITIS
     Dosage: 40 MG, EVERY OTHER WEEK
     Route: 058
  6. ORENCIA [Suspect]
     Indication: RHEUMATOID ARTHRITIS
     Dosage: 125 MG, WEEKLY
     Route: 058
  7. HUMIRA [Suspect]
     Dosage: 40 MG, EVERY OTHER WEEK
     Route: 058
  8. HYDROXYCHLOROQUINE [Concomitant]
     Dosage: 400 MG, QD
     Route: 048
  9. METHOTREXATE [Concomitant]
     Dosage: 10-20 MG WEEK
     Route: 048

REACTIONS (7)
  - Joint destruction [Unknown]
  - Tendon rupture [Unknown]
  - Drug ineffective [Unknown]
  - C-reactive protein increased [Recovered/Resolved]
  - Pharyngitis [Unknown]
  - Synovitis [Unknown]
  - Pain in extremity [Unknown]
